FAERS Safety Report 7476538-X (Version None)
Quarter: 2011Q2

REPORT INFORMATION
  Report Type: 
  Country: None (occurrence: None)
  Receive Date: 20110512
  Receipt Date: 20110506
  Transmission Date: 20111010
  Serious: Yes (Hospitalization, Other)
  Sender: FDA-Public Use
  Company Number: CHPA2011US06191

PATIENT
  Age: 60 Year
  Sex: Female

DRUGS (1)
  1. EXCEDRIN (MIGRAINE) [Suspect]
     Indication: MIGRAINE
     Dosage: 2 DF, PRN
     Route: 062

REACTIONS (6)
  - MENINGITIS VIRAL [None]
  - WALKING AID USER [None]
  - DRUG INEFFECTIVE [None]
  - WHEELCHAIR USER [None]
  - APHASIA [None]
  - WALKING DISABILITY [None]
